FAERS Safety Report 7969625-0 (Version None)
Quarter: 2011Q4

REPORT INFORMATION
  Report Type: 
  Country: None (occurrence: None)
  Receive Date: 20111212
  Receipt Date: 20111202
  Transmission Date: 20120403
  Serious: No
  Sender: FDA-Public Use
  Company Number: US-JNJFOC-20111201587

PATIENT
  Sex: Female
  Weight: 113.4 kg

DRUGS (11)
  1. ULTRAM [Concomitant]
     Indication: PAIN
     Dosage: 2 TO 4 TIMES IN A DAY
     Route: 048
  2. TRAZODONE HCL [Concomitant]
     Indication: SLEEP DISORDER
     Route: 048
  3. LIPITOR [Concomitant]
     Indication: BLOOD CHOLESTEROL
     Route: 048
  4. OXYBUTYNIN [Concomitant]
     Indication: URINARY INCONTINENCE
     Route: 048
  5. BACLOFEN [Concomitant]
     Indication: BACK PAIN
     Route: 048
  6. METOCLOPRAMIDE [Concomitant]
     Indication: GASTRIC DISORDER
     Route: 048
  7. NAPROXEN [Concomitant]
     Indication: BACK DISORDER
     Route: 048
  8. DOCUSATE SODIUM [Concomitant]
     Indication: ABNORMAL FAECES
     Route: 065
  9. DURAGESIC-100 [Suspect]
     Indication: BACK DISORDER
     Route: 062
     Dates: start: 20110701
  10. SINGULAIR [Concomitant]
     Indication: MULTIPLE ALLERGIES
     Route: 048
  11. LEXAPRO [Concomitant]
     Indication: DEPRESSION
     Route: 048

REACTIONS (2)
  - PRODUCT QUALITY ISSUE [None]
  - WRONG TECHNIQUE IN DRUG USAGE PROCESS [None]
